FAERS Safety Report 4293614-3 (Version None)
Quarter: 2004Q1

REPORT INFORMATION
  Report Type: 
  Country: None (occurrence: None)
  Receive Date: 20040211
  Receipt Date: 20040211
  Transmission Date: 20041129
  Serious: Yes (Other)
  Sender: FDA-Public Use
  Company Number: None

PATIENT
  Sex: Female
  Weight: 47.6277 kg

DRUGS (2)
  1. ZOLOFT [Suspect]
     Indication: ANXIETY
     Dosage: 1 X 50MG/DAY
     Dates: start: 20021226
  2. ZOLOFT [Suspect]
     Indication: DEPRESSION
     Dosage: 1 X 50MG/DAY
     Dates: start: 20021226

REACTIONS (5)
  - DRUG WITHDRAWAL SYNDROME [None]
  - FEELING ABNORMAL [None]
  - RESTLESSNESS [None]
  - VISION BLURRED [None]
  - WEIGHT DECREASED [None]
